FAERS Safety Report 5266496-0 (Version None)
Quarter: 2007Q1

REPORT INFORMATION
  Report Type: 
  Country: None (occurrence: None)
  Receive Date: 20070315
  Receipt Date: 20070302
  Transmission Date: 20070707
  Serious: Yes (Hospitalization)
  Sender: FDA-Public Use
  Company Number: FR-ELI_LILLY_AND_COMPANY-FR200612002744

PATIENT
  Age: 73 Year
  Sex: Female

DRUGS (6)
  1. FORTEO [Suspect]
     Indication: OSTEOPOROTIC FRACTURE
     Dosage: 20 UG, DAILY (1/D)
     Route: 058
     Dates: start: 20060714
  2. TAHOR [Concomitant]
     Indication: HYPERCHOLESTEROLAEMIA
     Route: 048
  3. MUCOMYST [Concomitant]
     Route: 048
  4. CACIT VITAMINE D3 [Concomitant]
     Indication: OSTEOPOROSIS
     Route: 048
  5. CORTANCYL [Concomitant]
     Indication: FIBROSIS
     Dosage: 20 MG, DAILY (1/D)
     Route: 048
  6. MOPRAL [Concomitant]
     Indication: PROPHYLAXIS AGAINST GASTROINTESTINAL ULCER
     Dosage: 20 MG, UNK
     Route: 048

REACTIONS (2)
  - PHLEBITIS [None]
  - PULMONARY EMBOLISM [None]
